FAERS Safety Report 14603979 (Version 1)
Quarter: 2018Q1

REPORT INFORMATION
  Report Type: Spontaneous
  Country: CA (occurrence: CA)
  Receive Date: 20180306
  Receipt Date: 20180306
  Transmission Date: 20180509
  Serious: Yes (Other)
  Sender: FDA-Public Use
  Company Number: CA-MYLANLABS-2018M1013917

PATIENT
  Age: 45 Year
  Sex: Female
  Weight: 58.96 kg

DRUGS (2)
  1. CLARUS [Suspect]
     Active Substance: ISOTRETINOIN
     Dosage: 40 MG, QD
     Route: 048
  2. CLARUS [Suspect]
     Active Substance: ISOTRETINOIN
     Indication: ACNE
     Dosage: 10 MG, BID
     Route: 048

REACTIONS (7)
  - Pruritus [Recovering/Resolving]
  - Rash erythematous [Recovering/Resolving]
  - Skin discolouration [Recovering/Resolving]
  - Hyperaesthesia [Recovering/Resolving]
  - Pain of skin [Recovering/Resolving]
  - Skin injury [Recovering/Resolving]
  - Burning sensation [Recovering/Resolving]
